FAERS Safety Report 5390833-X (Version None)
Quarter: 2007Q3

REPORT INFORMATION
  Report Type: 
  Country: None (occurrence: None)
  Receive Date: 20070712
  Receipt Date: 20061227
  Transmission Date: 20080115
  Serious: Yes (Hospitalization)
  Sender: FDA-Public Use
  Company Number: 6028553

PATIENT
  Age: 28 Year
  Sex: Male

DRUGS (3)
  1. CIPROFLOXACIN [Suspect]
     Indication: CHOLANGITIS SUPPURATIVE
     Dosage: SEE IMAGE
     Route: 042
  2. METRONIDAZOLE [Concomitant]
  3. CEFAZOLIN [Concomitant]

REACTIONS (1)
  - MANIA [None]
